FAERS Safety Report 7241441-7 (Version None)
Quarter: 2011Q1

REPORT INFORMATION
  Report Type: 
  Country: None (occurrence: None)
  Receive Date: 20110124
  Receipt Date: 20110120
  Transmission Date: 20110831
  Serious: Yes (Hospitalization)
  Sender: FDA-Public Use
  Company Number: CO-ROCHE-754616

PATIENT
  Sex: Female

DRUGS (6)
  1. ACTEMRA [Suspect]
     Indication: RHEUMATOID ARTHRITIS
     Route: 042
     Dates: start: 20100205
  2. FUROSEMIDE [Concomitant]
     Dosage: FREQUENCY: QD
     Route: 048
  3. LEFLUNOMIDE [Concomitant]
     Dosage: FREQUENCY: QD
     Route: 048
  4. MELOXICAM [Concomitant]
     Dosage: FREQUENCY: QD
     Route: 048
  5. DEFLACORT [Concomitant]
     Dosage: FREQUENCY: QD, DRUG: DEFLAZACOR
     Route: 048
  6. WARFARIN [Concomitant]

REACTIONS (1)
  - EYE HAEMORRHAGE [None]
